FAERS Safety Report 9235539 (Version 1)
Quarter: 2013Q1

REPORT INFORMATION
  Report Type: Spontaneous
  Country: US (occurrence: None)
  Receive Date: 20121031
  Receipt Date: 20121031
  Transmission Date: 20140127
  Serious: Yes (Other)
  Sender: FDA-Public Use
  Company Number: PHEH2012US014862

PATIENT
  Age: 50 Year
  Sex: Female
  Weight: 85.73 kg

DRUGS (14)
  1. GILENYA [Suspect]
     Indication: RELAPSING-REMITTING MULTIPLE SCLEROSIS
     Route: 048
     Dates: start: 20110620
  2. AMLODIPINE BESYLATE (AMLODIPINE BESILATE) TABLET 5MG [Concomitant]
  3. BACLOFEN (BACLOFEN) TABLET, 10MG [Concomitant]
  4. BENICAR LLCT (OLMESARTAN MEDOXOMIL) TABLET [Concomitant]
  5. CYMBALTA (DULOXETINE HYDROCHLORIDE) EXTENDED RELEASE CAPSULE [Concomitant]
  6. FUROSEMIDE (FUROSEMIDE) TABLET [Concomitant]
  7. GLUCOSAMINE/CHONDROTIN (CHONDROTIN, GLUCOSAMINE) [Concomitant]
  8. LISINOPRIL W/ HYDROCHLOROTHIAZIDE [Concomitant]
  9. METHOCARBAMOL (METHOCARBAMOL) TABLET, 500MG [Concomitant]
  10. NUVIGIL (ARMODAFINIL) TABLET, 200MG [Concomitant]
  11. PROVIGIL (MODAFINIL) TABLET 200MG [Concomitant]
  12. FAMPRIDINE (FAMPRIDINE) [Concomitant]
  13. VESICARE (SOLFENACIN) TABLET, 10MG [Concomitant]
  14. MULTIVITAMINS (ASCORBIC ACID, ERGOCALCIFEROL, FOLIC ACID, NICOTINAMIDE, PANTHENOL, RETINOL, RIBOFLAVIN, THIAMINE HYDROCHLORIDE) TABLET [Concomitant]

REACTIONS (1)
  - Headache [None]
